FAERS Safety Report 14115752 (Version 1)
Quarter: 2017Q4

REPORT INFORMATION
  Report Type: Report from Study
  Country: BR (occurrence: BR)
  Receive Date: 20171023
  Receipt Date: 20171023
  Transmission Date: 20180321
  Serious: Yes (Death)
  Sender: FDA-Public Use
  Company Number: BR-UCBSA-2017042267

PATIENT
  Age: 9 Year
  Sex: Male

DRUGS (1)
  1. LACOSAMIDE. [Suspect]
     Active Substance: LACOSAMIDE
     Indication: EPILEPSY
     Dosage: 100 MG
     Route: 048
     Dates: start: 201708, end: 20170906

REACTIONS (2)
  - Seizure [Fatal]
  - Off label use [Unknown]

NARRATIVE: CASE EVENT DATE: 201708
